FAERS Safety Report 4639710-X (Version None)
Quarter: 2005Q2

REPORT INFORMATION
  Report Type: 
  Country: None (occurrence: None)
  Receive Date: 20050328
  Receipt Date: 20041221
  Transmission Date: 20051028
  Serious: No
  Sender: FDA-Public Use
  Company Number: USA041286733

PATIENT
  Age: 14 Year
  Sex: Male
  Weight: 68 kg

DRUGS (11)
  1. STRATTERA [Suspect]
     Indication: ATTENTION DEFICIT/HYPERACTIVITY DISORDER
     Dosage: 80 MG DAY
     Dates: start: 20031013
  2. LIQUIBID D [Concomitant]
  3. ADVAIR DISKUS 100/50 [Concomitant]
  4. FLONASE [Concomitant]
  5. ASTELIN [Concomitant]
  6. ZYRTEC [Concomitant]
  7. SINGULAIR (MONTELUKAST) [Concomitant]
  8. MUCINEX (GUAIFENESIN L.A.) [Concomitant]
  9. AMITRIPTYLINE HCL TAB [Concomitant]
  10. MAXAIR [Concomitant]
  11. FORADIL [Concomitant]

REACTIONS (12)
  - ANGER [None]
  - DRUG EFFECT DECREASED [None]
  - DRY MOUTH [None]
  - EYE PRURITUS [None]
  - FATIGUE [None]
  - INFECTION [None]
  - INSOMNIA [None]
  - MOOD SWINGS [None]
  - SOMNOLENCE [None]
  - STOMACH DISCOMFORT [None]
  - TREMOR [None]
  - YAWNING [None]
